FAERS Safety Report 5258761-8 (Version None)
Quarter: 2007Q1

REPORT INFORMATION
  Report Type: 
  Country: None (occurrence: None)
  Receive Date: 20070306
  Receipt Date: 20070306
  Transmission Date: 20070707
  Serious: No
  Sender: FDA-Public Use
  Company Number: None

PATIENT
  Age: 95 Year
  Sex: Female
  Weight: 64.4108 kg

DRUGS (1)
  1. VANCOMYCIN [Suspect]
     Indication: OSTEOMYELITIS
     Dosage: 1000 MG  EVERY 48 HOURS  I.V.
     Route: 042
     Dates: start: 20070219, end: 20070305

REACTIONS (1)
  - PRURITUS GENERALISED [None]
